FAERS Safety Report 7284875-7 (Version None)
Quarter: 2011Q1

REPORT INFORMATION
  Report Type: 
  Country: None (occurrence: None)
  Receive Date: 20110204
  Receipt Date: 20110204
  Transmission Date: 20110831
  Serious: Yes (Life-Threatening, Hospitalization, Other)
  Sender: FDA-Public Use
  Company Number: None

PATIENT
  Sex: Female

DRUGS (1)
  1. PROZAC [Suspect]
     Indication: PAIN
     Dosage: 1 ONCE A DAY PO
     Route: 048
     Dates: start: 20090401, end: 20091201

REACTIONS (7)
  - MEMORY IMPAIRMENT [None]
  - CONVULSION [None]
  - HEADACHE [None]
  - CEREBROVASCULAR ACCIDENT [None]
  - VASCULITIS [None]
  - NERVOUS SYSTEM DISORDER [None]
  - PHYSICAL EXAMINATION ABNORMAL [None]
